FAERS Safety Report 8189959-7 (Version None)
Quarter: 2012Q1

REPORT INFORMATION
  Report Type: 
  Country: None (occurrence: None)
  Receive Date: 20120307
  Receipt Date: 20120228
  Transmission Date: 20120608
  Serious: Yes (Hospitalization, Other)
  Sender: FDA-Public Use
  Company Number: US-ASTELLAS-2012US001752

PATIENT
  Sex: Male

DRUGS (23)
  1. ALPRAZOLAM [Concomitant]
     Indication: ANXIETY
     Dosage: 0.25 MG, UNKNOWN/D
     Route: 065
  2. FISH OIL [Concomitant]
     Indication: SUPPLEMENTATION THERAPY
     Dosage: 1 DF, UID/QD
     Route: 048
     Dates: start: 20111228
  3. FLAXSEED OIL [Concomitant]
     Indication: SUPPLEMENTATION THERAPY
     Dosage: 1 DF, UID/QD
     Route: 048
     Dates: start: 20111228
  4. CISPLATIN [Suspect]
     Indication: LARYNGEAL CANCER STAGE IV
     Dosage: UNK
     Route: 065
     Dates: start: 20111229, end: 20120118
  5. NORCO [Concomitant]
     Indication: PRODUCT USED FOR UNKNOWN INDICATION
     Dosage: UNK
     Route: 065
  6. DEXAMETHASONE [Concomitant]
     Indication: VOMITING
  7. HYDROCODONE BITARTRATE AND ACETAMINOPHEN [Concomitant]
     Indication: PAIN
     Dosage: UNK, 1-2 DF Q 4 HRS, PRN
     Route: 047
     Dates: start: 20110622
  8. NYSTATIN [Concomitant]
     Indication: FUNGAL INFECTION
     Dosage: 5 ML, QID
     Route: 048
  9. ONDANSETRON [Concomitant]
     Indication: NAUSEA
     Dosage: 1 DF, Q8 HOURS
     Route: 048
     Dates: start: 20111228
  10. ERLOTINIB HYDROCHLORIDE [Suspect]
     Indication: LARYNGEAL CANCER STAGE IV
     Dosage: UNK
     Route: 048
     Dates: start: 20111229
  11. DOCETAXEL [Suspect]
     Indication: LARYNGEAL CANCER STAGE IV
     Dosage: UNK
     Route: 065
     Dates: start: 20111229, end: 20120118
  12. LEVOTHYROXINE SODIUM [Concomitant]
     Indication: HYPOTHYROIDISM
     Dosage: 1 DF, UID/QD
     Route: 048
     Dates: start: 20111228
  13. PROMETHAZINE [Concomitant]
     Indication: PRODUCT USED FOR UNKNOWN INDICATION
     Dosage: UNK
     Route: 065
  14. NEULASTA [Concomitant]
     Indication: PRODUCT USED FOR UNKNOWN INDICATION
     Dosage: 6 MG, UNKNOWN/D
     Route: 059
  15. ERLOTINIB HYDROCHLORIDE [Suspect]
     Dosage: 100 MG, UID/QD
     Route: 048
     Dates: start: 20120113, end: 20120129
  16. ALIVE VITAMIN [Concomitant]
     Indication: SUPPLEMENTATION THERAPY
     Dosage: 1 DF, UID/QD
     Route: 045
     Dates: start: 20111228
  17. VITAMIN B-12 [Concomitant]
     Indication: SUPPLEMENTATION THERAPY
     Dosage: 1 DF, UID/QD
     Route: 060
     Dates: start: 20111228
  18. DEXAMETHASONE [Concomitant]
     Indication: NAUSEA
     Dosage: 1 DF, Q12 HOURS
     Route: 048
  19. ONDANSETRON [Concomitant]
     Indication: VOMITING
  20. SENOKOT [Concomitant]
     Indication: CONSTIPATION
     Dosage: UNK, 1-2 DF
     Route: 048
     Dates: start: 20110622
  21. XANAX [Concomitant]
     Indication: ANXIETY
     Dosage: 0.25 MG, Q 8 HOURS, PRN
     Route: 048
     Dates: start: 20110622
  22. PHENERGAN [Concomitant]
     Indication: NAUSEA
     Dosage: 12.5 MG, Q6 HRS PRN
     Route: 048
     Dates: start: 20110622
  23. PHENERGAN [Concomitant]
     Indication: VOMITING

REACTIONS (13)
  - HIATUS HERNIA [None]
  - BARRETT'S OESOPHAGUS [None]
  - UPPER GASTROINTESTINAL HAEMORRHAGE [None]
  - DUODENITIS [None]
  - GASTRIC ULCER [None]
  - OESOPHAGEAL ULCER [None]
  - RASH [None]
  - OFF LABEL USE [None]
  - PLATELET COUNT DECREASED [None]
  - RASH MACULO-PAPULAR [None]
  - DISEASE PROGRESSION [None]
  - LEUKOCYTOSIS [None]
  - ANAEMIA [None]
